FAERS Safety Report 5034014-8 (Version None)
Quarter: 2006Q2

REPORT INFORMATION
  Report Type: 
  Country: None (occurrence: None)
  Receive Date: 20060626
  Receipt Date: 20060615
  Transmission Date: 20061013
  Serious: Yes (Hospitalization, Other)
  Sender: FDA-Public Use
  Company Number: PHBS2006JP09145

PATIENT
  Sex: Male
  Weight: 56 kg

DRUGS (5)
  1. TEGRETOL [Suspect]
     Indication: DIABETIC NEUROPATHY
     Dosage: 200 MG/DAY
     Route: 048
     Dates: start: 20060301, end: 20060329
  2. ASPIRIN [Suspect]
     Route: 048
     Dates: end: 20060329
  3. ACTOS [Suspect]
     Route: 048
     Dates: end: 20060329
  4. EUGLUCON [Suspect]
     Route: 048
     Dates: end: 20060329
  5. PRAVASTATIN SODIUM [Suspect]
     Route: 048
     Dates: end: 20060329

REACTIONS (24)
  - ARRHYTHMIA [None]
  - ARTERIOSCLEROSIS [None]
  - BLOOD ALKALINE PHOSPHATASE INCREASED [None]
  - BLOOD GLUCOSE INCREASED [None]
  - BLOOD LACTATE DEHYDROGENASE INCREASED [None]
  - BRONCHITIS CHRONIC [None]
  - C-REACTIVE PROTEIN INCREASED [None]
  - CHEST DISCOMFORT [None]
  - DRUG ERUPTION [None]
  - EJECTION FRACTION DECREASED [None]
  - ERYTHEMA [None]
  - EYELID OEDEMA [None]
  - GAMMA-GLUTAMYLTRANSFERASE INCREASED [None]
  - GASTRITIS ATROPHIC [None]
  - HAEMORRHAGE SUBCUTANEOUS [None]
  - HIATUS HERNIA [None]
  - HICCUPS [None]
  - NEUROGENIC BLADDER [None]
  - PLEURAL FIBROSIS [None]
  - PYREXIA [None]
  - RASH [None]
  - RASH PUSTULAR [None]
  - RENAL CYST [None]
  - WHITE BLOOD CELL COUNT INCREASED [None]
